FAERS Safety Report 25787458 (Version 1)
Quarter: 2025Q3

REPORT INFORMATION
  Report Type: Spontaneous
  Country: EU (occurrence: EU)
  Receive Date: 20250910
  Receipt Date: 20250910
  Transmission Date: 20251020
  Serious: Yes (Hospitalization, Other)
  Sender: CHEPLAPHARM
  Company Number: None

PATIENT
  Age: 95 Year
  Sex: Female

DRUGS (1)
  1. QUETIAPINE [Suspect]
     Active Substance: QUETIAPINE
     Indication: Cognitive disorder
     Dosage: 1-0-2?DAILY DOSE: 75 MILLIGRAM
     Route: 048
     Dates: start: 20221219

REACTIONS (12)
  - Pulmonary embolism [Recovering/Resolving]
  - Pulmonary hypertension [Unknown]
  - Bile duct stone [Unknown]
  - Cardiomegaly [Unknown]
  - Arteriosclerosis [Unknown]
  - Atelectasis [Unknown]
  - Osteopenia [Unknown]
  - Cholelithiasis [Unknown]
  - Diverticulum intestinal [Unknown]
  - Oedema peripheral [Unknown]
  - Decreased activity [Unknown]
  - Off label use [Not Recovered/Not Resolved]

NARRATIVE: CASE EVENT DATE: 20221219
